FAERS Safety Report 7529992-9 (Version None)
Quarter: 2011Q2

REPORT INFORMATION
  Report Type: 
  Country: None (occurrence: None)
  Receive Date: 20110607
  Receipt Date: 20110527
  Transmission Date: 20111010
  Serious: Yes (Hospitalization, Other)
  Sender: FDA-Public Use
  Company Number: US-MERCK-0708USA05622

PATIENT
  Age: 46 Year
  Sex: Female
  Weight: 73 kg

DRUGS (3)
  1. CELEBREX [Concomitant]
     Indication: ARTHRITIS
     Route: 065
     Dates: start: 20010101
  2. FOSAMAX [Suspect]
     Indication: OSTEOPOROSIS
     Route: 048
     Dates: start: 19960201, end: 20050401
  3. FLEXERIL [Concomitant]
     Indication: MUSCLE SPASMS
     Route: 065
     Dates: start: 19890101

REACTIONS (12)
  - SPINAL OSTEOARTHRITIS [None]
  - CERVICAL VERTEBRAL FRACTURE [None]
  - TOOTH FRACTURE [None]
  - GALLBLADDER DISORDER [None]
  - SINUS DISORDER [None]
  - DEPRESSION [None]
  - MYOCARDIAL INFARCTION [None]
  - OSTEONECROSIS OF JAW [None]
  - ATRIOVENTRICULAR BLOCK [None]
  - SPINAL DISORDER [None]
  - INSOMNIA [None]
  - DENTAL CARIES [None]
